FAERS Safety Report 8907088 (Version 1)
Quarter: 2012Q4

REPORT INFORMATION
  Report Type: 
  Country: US (occurrence: US)
  Receive Date: 20121114
  Receipt Date: 20121114
  Transmission Date: 20130627
  Serious: No
  Sender: FDA-Public Use
  Company Number: US-GLAXOSMITHKLINE-A0986572A

PATIENT
  Sex: Male

DRUGS (2)
  1. VELTIN [Suspect]
     Route: 061
  2. NO CONCURRENT MEDICATION [Concomitant]

REACTIONS (1)
  - Rash pruritic [Unknown]
